FAERS Safety Report 17157265 (Version 1)
Quarter: 2019Q4

REPORT INFORMATION
  Report Type: Spontaneous
  Country: DE (occurrence: DE)
  Receive Date: 20191216
  Receipt Date: 20191216
  Transmission Date: 20200122
  Serious: Yes (Other)
  Sender: FDA-Public Use
  Company Number: DE-ACCORD-165980

PATIENT
  Age: 68 Year
  Sex: Male

DRUGS (2)
  1. PACLITAXEL/PACLITAXEL LIPOSOME [Suspect]
     Active Substance: PACLITAXEL
     Indication: STENT PLACEMENT
     Dosage: PACLITAXEL DRUG-COATED BALLOONS
  2. PACLITAXEL/PACLITAXEL LIPOSOME [Suspect]
     Active Substance: PACLITAXEL
     Indication: STENT PLACEMENT
     Dosage: PACLITAXEL DRUG-ELUTED STENT

REACTIONS (2)
  - Vascular pain [Unknown]
  - Arterial injury [Unknown]
